FAERS Safety Report 15452393 (Version 2)
Quarter: 2018Q4

REPORT INFORMATION
  Report Type: Report from Study
  Country: GB (occurrence: GB)
  Receive Date: 20181001
  Receipt Date: 20181002
  Transmission Date: 20190204
  Serious: Yes (Other)
  Sender: FDA-Public Use
  Company Number: GB-PFIZER INC-2018388291

PATIENT
  Age: 31 Year

DRUGS (3)
  1. LEVETIRACETAM. [Suspect]
     Active Substance: LEVETIRACETAM
     Dosage: UNK
  2. TOPAMAX [Concomitant]
     Active Substance: TOPIRAMATE
  3. LAMICTAL [Concomitant]
     Active Substance: LAMOTRIGINE

REACTIONS (12)
  - Deja vu [Unknown]
  - Depression [Unknown]
  - Fatigue [Unknown]
  - Obsessive-compulsive disorder [Unknown]
  - Aura [Unknown]
  - Suicidal ideation [Unknown]
  - Dizziness [Unknown]
  - Anger [Unknown]
  - Petit mal epilepsy [Unknown]
  - Labyrinthitis [Unknown]
  - Balance disorder [Unknown]
  - Jamais vu [Unknown]
